FAERS Safety Report 23416415 (Version 1)
Quarter: 2024Q1

REPORT INFORMATION
  Report Type: Spontaneous
  Country: US (occurrence: US)
  Receive Date: 20240118
  Receipt Date: 20240118
  Transmission Date: 20240410
  Serious: No
  Sender: FDA-Public Use
  Company Number: US-LANNETT COMPANY, INC.-US-2023LAN000037

PATIENT
  Sex: Female

DRUGS (2)
  1. PRIMIDONE [Suspect]
     Active Substance: PRIMIDONE
     Indication: Seizure
     Dosage: UNK
     Route: 065
  2. PRIMIDONE [Suspect]
     Active Substance: PRIMIDONE
     Dosage: UNK, BID
     Route: 065

REACTIONS (1)
  - Somnolence [Unknown]
